FAERS Safety Report 4881807-3 (Version None)
Quarter: 2006Q1

REPORT INFORMATION
  Report Type: 
  Country: None (occurrence: None)
  Receive Date: 20060112
  Receipt Date: 20060112
  Transmission Date: 20060701
  Serious: Yes (Life-Threatening)
  Sender: FDA-Public Use
  Company Number: None

PATIENT
  Sex: Male

DRUGS (1)
  1. AMPHOTERICIN B [Suspect]
     Indication: FUNGAL INFECTION
     Dosage: 40 MG DAILY IV
     Route: 042
     Dates: start: 20051214, end: 20051214

REACTIONS (2)
  - HYPOTENSION [None]
  - TACHYCARDIA [None]
